FAERS Safety Report 11550900 (Version 1)
Quarter: 2015Q3

REPORT INFORMATION
  Report Type: Spontaneous
  Country: US (occurrence: US)
  Receive Date: 20150903
  Receipt Date: 20150903
  Transmission Date: 20151125
  Serious: No
  Sender: FDA-Public Use
  Company Number: US-ELI_LILLY_AND_COMPANY-US201205010226

PATIENT
  Sex: Female
  Weight: 90 kg

DRUGS (3)
  1. HUMALOG [Suspect]
     Active Substance: INSULIN LISPRO
     Indication: TYPE 2 DIABETES MELLITUS
     Dosage: UNK, PRN
     Route: 065
     Dates: start: 20120510, end: 20120529
  2. HUMALOG [Suspect]
     Active Substance: INSULIN LISPRO
     Dosage: UNK, PRN
     Route: 065
     Dates: start: 20120618
  3. LANTUS [Concomitant]
     Active Substance: INSULIN GLARGINE

REACTIONS (6)
  - Blood glucose increased [Recovered/Resolved]
  - Apathy [Recovered/Resolved]
  - Irritability [Recovered/Resolved]
  - Depressed mood [Recovered/Resolved]
  - Pruritus [Recovered/Resolved]
  - Agitation [Recovered/Resolved]
